FAERS Safety Report 7239432-5 (Version None)
Quarter: 2011Q1

REPORT INFORMATION
  Report Type: 
  Country: None (occurrence: None)
  Receive Date: 20110121
  Receipt Date: 20110110
  Transmission Date: 20110831
  Serious: Yes (Hospitalization)
  Sender: FDA-Public Use
  Company Number: PHHO2011SG00786

PATIENT
  Sex: Female

DRUGS (2)
  1. ACZ885 [Suspect]
     Indication: DRUG RESISTANCE
     Dosage: UNK
     Route: 048
  2. ACZ885 [Suspect]
     Indication: RHEUMATOID ARTHRITIS

REACTIONS (2)
  - DRUG INEFFECTIVE [None]
  - CHRONIC INFANTILE NEUROLOGICAL CUTANEOUS AND ARTICULAR SYNDROME [None]
